FAERS Safety Report 5212502-9 (Version None)
Quarter: 2007Q1

REPORT INFORMATION
  Report Type: 
  Country: None (occurrence: None)
  Receive Date: 20070118
  Receipt Date: 20070105
  Transmission Date: 20070707
  Serious: Yes (Other)
  Sender: FDA-Public Use
  Company Number: US-SHR-US-2006-033184

PATIENT
  Age: 40 Year
  Sex: Female

DRUGS (2)
  1. BETASERON [Suspect]
     Dosage: 8 MIU, EVERY 2D AT BEDTIME
     Route: 058
     Dates: start: 20060825
  2. BLOOD THINNER [Concomitant]

REACTIONS (11)
  - BLOOD POTASSIUM DECREASED [None]
  - CHEST PAIN [None]
  - DISCOMFORT [None]
  - ELECTROCARDIOGRAM T WAVE ABNORMAL [None]
  - FATIGUE [None]
  - HEADACHE [None]
  - HEART RATE INCREASED [None]
  - INJECTION SITE BRUISING [None]
  - PAIN IN EXTREMITY [None]
  - VISION BLURRED [None]
  - VISUAL ACUITY REDUCED [None]
